FAERS Safety Report 4437302-9 (Version None)
Quarter: 2004Q3

REPORT INFORMATION
  Report Type: 
  Country: None (occurrence: None)
  Receive Date: 20040827
  Receipt Date: 20040812
  Transmission Date: 20050211
  Serious: Yes (Death, Hospitalization, Other)
  Sender: FDA-Public Use
  Company Number: 2014517

PATIENT
  Age: 53 Year
  Sex: Female
  Weight: 63.5 kg

DRUGS (56)
  1. OXYCONTIN [Suspect]
     Indication: PAIN
     Dosage: SEE IMAGE
     Route: 048
     Dates: start: 19980101, end: 20010506
  2. OXYCONTIN [Suspect]
     Indication: PAIN
     Dosage: SEE IMAGE
     Route: 048
     Dates: start: 19970701
  3. OXYCONTIN [Suspect]
     Indication: PAIN
     Dosage: SEE IMAGE
     Route: 048
     Dates: start: 19970910
  4. OXYCONTIN [Suspect]
     Indication: PAIN
     Dosage: SEE IMAGE
     Route: 048
     Dates: start: 19980806
  5. OXYCONTIN [Suspect]
     Indication: PAIN
     Dosage: SEE IMAGE
     Route: 048
     Dates: start: 19981208
  6. OXYCONTIN [Suspect]
     Indication: PAIN
     Dosage: SEE IMAGE
     Route: 048
     Dates: start: 19990202
  7. OXYCONTIN [Suspect]
     Indication: PAIN
     Dosage: SEE IMAGE
     Route: 048
     Dates: start: 20000313
  8. LORCET-HD [Suspect]
     Indication: PAIN
     Dosage: ORAL
     Route: 048
     Dates: end: 20010506
  9. METHADONE HCL [Suspect]
     Dates: end: 20010506
  10. LIPITOR [Concomitant]
  11. ELAVIL [Concomitant]
  12. DESYREL [Concomitant]
  13. VERAPAMIL [Concomitant]
  14. ZITHROMAX [Concomitant]
  15. CELESTONE [Concomitant]
  16. TORADOL [Concomitant]
  17. PHENERGAN EXPECTORANT (SULFOGAIACOL, SODIUM CITRATE, PROMETHAZINE HYDR [Concomitant]
  18. PREVACID [Concomitant]
  19. VERELAN (VERAPAMIL HYDROCHLORIDE) [Concomitant]
  20. ESTRATEST [Concomitant]
  21. XANAX [Concomitant]
  22. AMBIEN [Concomitant]
  23. EFFEXOR XR [Concomitant]
  24. CLONIDINE [Concomitant]
  25. SOMA [Concomitant]
  26. HALOTESTIN (FLUOXYMESTERONE) [Concomitant]
  27. CELEXA [Concomitant]
  28. PREDNISONE [Concomitant]
  29. DEXEDRINE ^MEDEVA^ (DEXAMFETAMINE SULFATE) [Concomitant]
  30. PROPOXYPHENE [Concomitant]
  31. LANOXIN [Concomitant]
  32. GLUCOPHAGE [Concomitant]
  33. REGLAN [Concomitant]
  34. NEURONTIN [Concomitant]
  35. ARAVA [Concomitant]
  36. FLAGYL [Concomitant]
  37. BIAXIN [Concomitant]
  38. ISOPTIN [Concomitant]
  39. TICLID [Concomitant]
  40. WELLBUTRIN [Concomitant]
  41. PRANDIN ^KUHN^ (DEFLAZACORT) [Concomitant]
  42. HYDRONET (HYDROCHLOROTHIAZIDE, AMILORIDE) [Concomitant]
  43. CALCIUM [Concomitant]
  44. DHEA (PRASTERONE) [Concomitant]
  45. DEPO-ESTRADIOL (CHLOROBUTANOL, COTTONSEED OIL, ESTRADIOL CIPIONATE) [Concomitant]
  46. ROXICODONE [Concomitant]
  47. PLETAL [Concomitant]
  48. LASIX [Concomitant]
  49. POTASSIUM CHLORIDE [Concomitant]
  50. ATIVAN [Concomitant]
  51. ALBUTEROL [Concomitant]
  52. PEPCID [Concomitant]
  53. CELEBREX [Concomitant]
  54. INSULIN, REGULAR (INSULIN) [Concomitant]
  55. SIMETHICONE (SIMETICONE) [Concomitant]
  56. OXYIR (OXYCODONE HYDROCHLORIDE) [Concomitant]

REACTIONS (61)
  - ACCIDENTAL OVERDOSE [None]
  - ANDROGENS DECREASED [None]
  - ANGIOPLASTY [None]
  - ANKLE FRACTURE [None]
  - ANXIETY [None]
  - AORTIC BYPASS [None]
  - ARTERIAL STENT INSERTION [None]
  - ARTERIOSCLEROSIS [None]
  - ASTHENIA [None]
  - ATTENTION DEFICIT/HYPERACTIVITY DISORDER [None]
  - BLOOD OESTROGEN DECREASED [None]
  - BRUXISM [None]
  - BURSITIS [None]
  - CONDITION AGGRAVATED [None]
  - CONFUSIONAL STATE [None]
  - CONSTIPATION [None]
  - CORNEAL DYSTROPHY [None]
  - CORNEAL EROSION [None]
  - CYANOSIS [None]
  - DEPRESSION [None]
  - DIABETES MELLITUS NON-INSULIN-DEPENDENT [None]
  - DIARRHOEA [None]
  - DISCOMFORT [None]
  - DIZZINESS [None]
  - DRUG DEPENDENCE [None]
  - DRUG INEFFECTIVE [None]
  - DRUG WITHDRAWAL SYNDROME [None]
  - EXTRADURAL ABSCESS [None]
  - EYE IRRITATION [None]
  - FALL [None]
  - FATIGUE [None]
  - GAIT DISTURBANCE [None]
  - GASTROOESOPHAGEAL REFLUX DISEASE [None]
  - HEART RATE DECREASED [None]
  - HIATUS HERNIA [None]
  - ILEUS PARALYTIC [None]
  - ILIAC ARTERY STENOSIS [None]
  - LOWER LIMB FRACTURE [None]
  - MEDICATION ERROR [None]
  - MILK ALLERGY [None]
  - MYOCLONUS [None]
  - NAUSEA [None]
  - NEGLECT OF PERSONAL APPEARANCE [None]
  - NEPHROLITHIASIS [None]
  - NEUROPATHY PERIPHERAL [None]
  - NIPPLE PAIN [None]
  - PAIN [None]
  - PAIN IN EXTREMITY [None]
  - PALLOR [None]
  - PERIPHERAL ISCHAEMIA [None]
  - PHARYNGOLARYNGEAL PAIN [None]
  - PNEUMONIA BACTERIAL [None]
  - RHEUMATOID ARTHRITIS [None]
  - ROAD TRAFFIC ACCIDENT [None]
  - SLEEP DISORDER [None]
  - SOMNOLENCE [None]
  - TACHYCARDIA [None]
  - UPPER RESPIRATORY TRACT INFECTION [None]
  - VISION BLURRED [None]
  - VOMITING [None]
  - WEIGHT INCREASED [None]
